FAERS Safety Report 7783342-1 (Version None)
Quarter: 2011Q3

REPORT INFORMATION
  Report Type: 
  Country: None (occurrence: None)
  Receive Date: 20110928
  Receipt Date: 20110920
  Transmission Date: 20111222
  Serious: Yes (Death)
  Sender: FDA-Public Use
  Company Number: TR-JNJFOC-20110910313

PATIENT
  Age: 82 Year
  Sex: Female

DRUGS (10)
  1. DOXORUBICIN HYDROCHLORIDE [Suspect]
     Indication: NON-HODGKIN'S LYMPHOMA
     Dosage: CYCLE 2
     Route: 042
  2. VINCRISTINE [Suspect]
     Indication: NON-HODGKIN'S LYMPHOMA
     Dosage: CYCLE 2
     Route: 065
  3. RITUXIMAB [Suspect]
     Indication: NON-HODGKIN'S LYMPHOMA
     Route: 065
  4. PREDNISONE [Suspect]
     Indication: NON-HODGKIN'S LYMPHOMA
     Route: 065
  5. PREDNISONE [Suspect]
     Dosage: CYCLE 2
     Route: 065
  6. RITUXIMAB [Suspect]
     Route: 065
  7. CYCLOPHOSPHAMIDE [Suspect]
     Indication: NON-HODGKIN'S LYMPHOMA
     Route: 065
  8. CYCLOPHOSPHAMIDE [Suspect]
     Dosage: CYCLE 2
     Route: 065
  9. DOXORUBICIN HYDROCHLORIDE [Suspect]
     Dosage: CYCLE 1
     Route: 042
  10. VINCRISTINE [Suspect]
     Route: 065

REACTIONS (1)
  - FEBRILE NEUTROPENIA [None]
